FAERS Safety Report 23574610 (Version 1)
Quarter: 2024Q1

REPORT INFORMATION
  Report Type: Spontaneous
  Country: FR (occurrence: FR)
  Receive Date: 20240228
  Receipt Date: 20240228
  Transmission Date: 20240410
  Serious: Yes (Other)
  Sender: FDA-Public Use
  Company Number: FR-SUN PHARMACEUTICAL INDUSTRIES LTD-2024RR-433013

PATIENT
  Age: 39 Year
  Sex: Female

DRUGS (15)
  1. OXALIPLATIN [Suspect]
     Active Substance: OXALIPLATIN
     Indication: Adenocarcinoma of colon
     Dosage: 85 MILLIGRAM/SQ. METER-12 CYCLES OF FOLFOX
     Route: 040
     Dates: start: 2016
  2. OXALIPLATIN [Suspect]
     Active Substance: OXALIPLATIN
     Dosage: 6 MONTH FOLFOX
     Dates: start: 2018
  3. OXALIPLATIN [Suspect]
     Active Substance: OXALIPLATIN
     Dosage: FOLFOX CHEMOTHERAPY?PANITUMAB PROTOCOL
     Dates: start: 201905
  4. OXALIPLATIN [Suspect]
     Active Substance: OXALIPLATIN
     Dosage: 90 MG/M2 OXALIPLATIN (160 MG) IN 150 ML SOLTION OF 5% DEXTROSE
     Dates: start: 202010
  5. OXALIPLATIN [Suspect]
     Active Substance: OXALIPLATIN
     Dosage: PIPOX TRIAL - 2 CYCLES
     Route: 033
     Dates: start: 2020
  6. IRINOTECAN [Suspect]
     Active Substance: IRINOTECAN
     Indication: Adenocarcinoma
     Dosage: FOLFIRI CHEMOTHERAPY
     Route: 065
     Dates: start: 2017
  7. LEUCOVORIN CALCIUM [Suspect]
     Active Substance: LEUCOVORIN CALCIUM
     Indication: Adenocarcinoma of colon
     Dosage: 12 CYCLES FOLFOX CHEMOTHERAPY
     Route: 065
     Dates: start: 2016
  8. LEUCOVORIN CALCIUM [Suspect]
     Active Substance: LEUCOVORIN CALCIUM
     Dosage: FOLFIRI CHEMOTHERAPY
     Route: 065
     Dates: start: 2017
  9. LEUCOVORIN CALCIUM [Suspect]
     Active Substance: LEUCOVORIN CALCIUM
     Dosage: 6 MONTHS FOLFOX CHEMOTHERAPY
     Route: 065
     Dates: start: 2019
  10. FLUOROURACIL [Suspect]
     Active Substance: FLUOROURACIL
     Indication: Adenocarcinoma of colon
     Dosage: 12 CYCLES FOLFOX CHEMOTHERAPY
     Route: 065
     Dates: start: 2016
  11. FLUOROURACIL [Suspect]
     Active Substance: FLUOROURACIL
     Dosage: FOLFIRI CHEMOTHERAPY
     Route: 065
     Dates: start: 2017
  12. FLUOROURACIL [Suspect]
     Active Substance: FLUOROURACIL
     Dosage: 6 MONTHS FOLFOX CHEMOTHERAPY
     Route: 065
     Dates: start: 2019
  13. CETUXIMAB [Suspect]
     Active Substance: CETUXIMAB
     Indication: Adenocarcinoma
     Dosage: UNK
     Route: 065
     Dates: start: 2017
  14. BEVACIZUMAB [Suspect]
     Active Substance: BEVACIZUMAB
     Indication: Adenocarcinoma
     Dosage: UNK
     Route: 065
     Dates: start: 2018
  15. PANITUMUMAB [Suspect]
     Active Substance: PANITUMUMAB
     Indication: Adenocarcinoma
     Dosage: UNK
     Route: 065
     Dates: start: 2019

REACTIONS (3)
  - Disease recurrence [Unknown]
  - Disease progression [Unknown]
  - Immune system disorder [Unknown]

NARRATIVE: CASE EVENT DATE: 20200101
